FAERS Safety Report 7241455-7 (Version None)
Quarter: 2011Q1

REPORT INFORMATION
  Report Type: 
  Country: None (occurrence: None)
  Receive Date: 20110114
  Receipt Date: 20101229
  Transmission Date: 20110831
  Serious: Yes (Other)
  Sender: FDA-Public Use
  Company Number: 2009003094

PATIENT
  Sex: Female

DRUGS (2)
  1. ERLOTINIB (ERLOTINIB) (TABLET) (ERLOTINIB) [Suspect]
     Indication: OVARIAN CANCER
     Dosage: (150 MG, 1 IN 1 D), ORAL
     Route: 048
  2. BEVACIZUMAB [Suspect]
     Indication: OVARIAN CANCER
     Dosage: (10 MG/KG, 1 IN 2 WK), INTRAVENOUS
     Route: 042

REACTIONS (2)
  - MYOCARDIAL INFARCTION [None]
  - NASAL SEPTUM PERFORATION [None]
